FAERS Safety Report 5058018-4 (Version None)
Quarter: 2006Q3

REPORT INFORMATION
  Report Type: 
  Country: None (occurrence: None)
  Receive Date: 20060721
  Receipt Date: 20060515
  Transmission Date: 20061208
  Serious: No
  Sender: FDA-Public Use
  Company Number: US-GLAXOSMITHKLINE-A0605612A

PATIENT
  Age: 36 Year
  Sex: Male

DRUGS (3)
  1. AVANDIA [Suspect]
     Dosage: 1MG TWICE PER DAY
     Route: 048
     Dates: start: 20051001, end: 20060510
  2. METFORMIN [Suspect]
     Route: 065
  3. UNKNOWN MEDICATION [Concomitant]

REACTIONS (2)
  - DRUG INEFFECTIVE [None]
  - GLYCOSYLATED HAEMOGLOBIN INCREASED [None]
